FAERS Safety Report 4716986-1 (Version None)
Quarter: 2005Q3

REPORT INFORMATION
  Report Type: 
  Country: None (occurrence: None)
  Receive Date: 20050712
  Receipt Date: 20041007
  Transmission Date: 20060218
  Serious: Yes (Life-Threatening)
  Sender: FDA-Public Use
  Company Number: PHEH2004US10887

PATIENT
  Age: 70 Year
  Sex: Male
  Weight: 80.7 kg

DRUGS (1)
  1. GLEEVEC [Suspect]
     Dosage: 400 MG, QD, ORAL
     Route: 046
     Dates: start: 20040901, end: 20040901

REACTIONS (3)
  - DIARRHOEA [None]
  - OEDEMA [None]
  - PANCREATITIS [None]
